FAERS Safety Report 5064854-0 (Version None)
Quarter: 2006Q3

REPORT INFORMATION
  Report Type: 
  Country: None (occurrence: None)
  Receive Date: 20060725
  Receipt Date: 20060712
  Transmission Date: 20061208
  Serious: Yes (Hospitalization, Other)
  Sender: FDA-Public Use
  Company Number: 2006089164

PATIENT
  Age: 44 Year
  Sex: Male
  Weight: 108.8633 kg

DRUGS (2)
  1. CELEBREX [Suspect]
     Indication: JOINT INJURY
     Dosage: 100 MG (100 MG, 1 IN 1 D)
     Dates: start: 20020101, end: 20060101
  2. BEXTRA [Suspect]
     Indication: JOINT INJURY
     Dosage: 40 MG (20 MG, 2 IN 1 D)
     Dates: start: 20020101, end: 20040101

REACTIONS (6)
  - ANGINA PECTORIS [None]
  - BIPOLAR I DISORDER [None]
  - BLOOD CHOLESTEROL INCREASED [None]
  - CHEST PAIN [None]
  - MYOCARDIAL INFARCTION [None]
  - PULMONARY HYPERTENSION [None]
